FAERS Safety Report 4727567-8 (Version None)
Quarter: 2005Q3

REPORT INFORMATION
  Report Type: 
  Country: None (occurrence: None)
  Receive Date: 20050728
  Receipt Date: 20040927
  Transmission Date: 20060218
  Serious: No
  Sender: FDA-Public Use
  Company Number: US-BRISTOL-MYERS SQUIBB COMPANY-12715082

PATIENT

DRUGS (2)
  1. ZERIT [Suspect]
  2. ACTOS [Suspect]

REACTIONS (1)
  - LOCAL SWELLING [None]
